FAERS Safety Report 5477895-6 (Version None)
Quarter: 2007Q4

REPORT INFORMATION
  Report Type: 
  Country: None (occurrence: None)
  Receive Date: 20071005
  Receipt Date: 20070928
  Transmission Date: 20080405
  Serious: Yes (Other)
  Sender: FDA-Public Use
  Company Number: PHBS2007CA16433

PATIENT
  Sex: Male

DRUGS (2)
  1. IMATINIB [Suspect]
     Indication: CHRONIC MYELOID LEUKAEMIA
     Dosage: 400 MG/D
     Route: 065
     Dates: start: 20001001, end: 20041001
  2. HYDROXYUREA [Concomitant]
     Route: 065
     Dates: start: 20000601, end: 20001101

REACTIONS (4)
  - ANAEMIA [None]
  - CYTOGENETIC ABNORMALITY [None]
  - MYELODYSPLASTIC SYNDROME [None]
  - PERIANAL ABSCESS [None]
